FAERS Safety Report 8534336-X (Version None)
Quarter: 2012Q3

REPORT INFORMATION
  Report Type: 
  Country: None (occurrence: None)
  Receive Date: 20120712
  Receipt Date: 20120629
  Transmission Date: 20120928
  Serious: Yes (Other)
  Sender: FDA-Public Use
  Company Number: 201207002

PATIENT
  Sex: Male

DRUGS (1)
  1. XIAFLEX [Suspect]
     Indication: DUPUYTREN'S CONTRACTURE

REACTIONS (3)
  - LACERATION [None]
  - DERMAL CYST [None]
  - LOCALISED INFECTION [None]
